FAERS Safety Report 15682155 (Version 4)
Quarter: 2020Q2

REPORT INFORMATION
  Report Type: Spontaneous
  Country: US (occurrence: US)
  Receive Date: 20181203
  Receipt Date: 20200527
  Transmission Date: 20200713
  Serious: Yes (Hospitalization, Other)
  Sender: FDA-Public Use
  Company Number: US-VIFOR (INTERNATIONAL) INC.-VIT-2018-11500

PATIENT
  Age: 74 Year
  Sex: Female

DRUGS (11)
  1. CITALOPRAM HYDROBROMIDE. [Concomitant]
     Active Substance: CITALOPRAM HYDROBROMIDE
  2. ASPIRIN LOW DOSE [Concomitant]
     Active Substance: ASPIRIN
  3. SIMVASTATIN. [Concomitant]
     Active Substance: SIMVASTATIN
  4. AMLODIPINE BESYLATE. [Concomitant]
     Active Substance: AMLODIPINE BESYLATE
  5. CLONIDINE HCL ER [Concomitant]
     Active Substance: CLONIDINE HYDROCHLORIDE
  6. FISH OIL BURPLESS [Concomitant]
  7. LOSARTAN POTASSIUM. [Concomitant]
     Active Substance: LOSARTAN POTASSIUM
  8. VELTASSA [Suspect]
     Active Substance: PATIROMER
     Indication: HYPERKALAEMIA
     Route: 048
     Dates: start: 20180818
  9. MULTI FOR HER 50+ [Concomitant]
  10. VELTASSA [Suspect]
     Active Substance: PATIROMER
     Dosage: EVERY OTHER DAY MONDAY THROUGH FRIDAY AND SATURDAY AND SUNDAY
     Route: 048
     Dates: start: 201807
  11. LEVOTHYROXINE SODIUM. [Concomitant]
     Active Substance: LEVOTHYROXINE SODIUM

REACTIONS (6)
  - Off label use [Unknown]
  - Flatulence [Not Recovered/Not Resolved]
  - Abdominal distension [Not Recovered/Not Resolved]
  - Complication associated with device [Unknown]
  - Bronchitis [Unknown]
  - Glaucoma [Not Recovered/Not Resolved]

NARRATIVE: CASE EVENT DATE: 2018
